FAERS Safety Report 9715625 (Version 2)
Quarter: 2013Q4

REPORT INFORMATION
  Report Type: Report from Study
  Country: DE (occurrence: DE)
  Receive Date: 20131127
  Receipt Date: 20131224
  Transmission Date: 20140711
  Serious: Yes (Life-Threatening, Hospitalization)
  Sender: FDA-Public Use
  Company Number: DE-ROCHE-1309203

PATIENT
  Age: 56 Year
  Sex: Female
  Weight: 95 kg

DRUGS (6)
  1. PEG-INTERFERON ALFA 2A [Suspect]
     Indication: CHRONIC HEPATITIS C
     Route: 058
     Dates: start: 20121031, end: 20131031
  2. RIBAVIRIN [Suspect]
     Indication: CHRONIC HEPATITIS C
     Dosage: TRADE NAME: COPEGUS
     Route: 048
     Dates: start: 20121031, end: 20131031
  3. TELAPREVIR [Suspect]
     Indication: CHRONIC HEPATITIS C
     Route: 048
     Dates: start: 20121031, end: 20130124
  4. METAMIZOL [Concomitant]
     Indication: NAUSEA
     Dosage: AS REQUIRED
     Route: 048
     Dates: start: 20121129, end: 20121213
  5. PANTOPRAZOL [Concomitant]
     Indication: DYSPEPSIA
     Route: 048
     Dates: start: 20121129
  6. CETIRIZIN [Concomitant]
     Route: 048
     Dates: start: 20121105, end: 20130424

REACTIONS (1)
  - Brain neoplasm [Not Recovered/Not Resolved]
